FAERS Safety Report 20433557 (Version 1)
Quarter: 2022Q1

REPORT INFORMATION
  Report Type: Spontaneous
  Country: JP (occurrence: JP)
  Receive Date: 20220205
  Receipt Date: 20220205
  Transmission Date: 20220423
  Serious: Yes (Hospitalization, Other)
  Sender: FDA-Public Use
  Company Number: JP-PFIZER INC-202101698559

PATIENT
  Age: 10 Year
  Sex: Female

DRUGS (3)
  1. CISPLATIN [Suspect]
     Active Substance: CISPLATIN
     Indication: CNS germinoma
  2. ETOPOSIDE [Suspect]
     Active Substance: ETOPOSIDE
     Indication: CNS germinoma
  3. METHOTREXATE [Concomitant]
     Active Substance: METHOTREXATE
     Indication: CNS germinoma
     Route: 037

REACTIONS (6)
  - Cerebral salt-wasting syndrome [Recovered/Resolved]
  - Neurotoxicity [Recovered/Resolved]
  - Hyponatraemia [Recovered/Resolved]
  - Cerebral atrophy [Not Recovered/Not Resolved]
  - Immune-mediated encephalitis [Recovered/Resolved]
  - Hemiplegia [Recovered/Resolved]
